FAERS Safety Report 6425156-0 (Version None)
Quarter: 2009Q4

REPORT INFORMATION
  Report Type: 
  Country: None (occurrence: None)
  Receive Date: 20091102
  Receipt Date: 20091102
  Transmission Date: 20100525
  Serious: No
  Sender: FDA-Public Use
  Company Number: None

PATIENT
  Age: 88 Year
  Sex: Male
  Weight: 97.98 kg

DRUGS (1)
  1. MOXIFLOXACIN HCL [Suspect]
     Indication: UPPER RESPIRATORY TRACT INFECTION
     Dosage: 400 MG EVERYDAY, IV
     Route: 042
     Dates: start: 20081229, end: 20081229

REACTIONS (2)
  - INFUSION RELATED REACTION [None]
  - RASH [None]
